FAERS Safety Report 6129137-6 (Version None)
Quarter: 2009Q1

REPORT INFORMATION
  Report Type: 
  Country: None (occurrence: None)
  Receive Date: 20090323
  Receipt Date: 20090323
  Transmission Date: 20090719
  Serious: Yes (Other)
  Sender: FDA-Public Use
  Company Number: None

PATIENT
  Age: 6 Year
  Sex: Female
  Weight: 22.2263 kg

DRUGS (1)
  1. EMLA [Suspect]
     Indication: BLOOD IMMUNOGLOBULIN G DECREASED
     Dosage: PRIOR TO VIVA-INFUSION
     Dates: start: 20090228

REACTIONS (4)
  - BODY TEMPERATURE INCREASED [None]
  - DRUG HYPERSENSITIVITY [None]
  - ERYTHEMA [None]
  - PARAESTHESIA ORAL [None]
